FAERS Safety Report 4320116-8 (Version None)
Quarter: 2004Q1

REPORT INFORMATION
  Report Type: 
  Country: None (occurrence: None)
  Receive Date: 20040317
  Receipt Date: 20040305
  Transmission Date: 20041129
  Serious: Yes (Hospitalization)
  Sender: FDA-Public Use
  Company Number: US-JNJFOC-20040301786

PATIENT
  Age: 28 Year
  Sex: Female
  Weight: 61 kg

DRUGS (6)
  1. REMICADE [Suspect]
     Indication: CROHN'S DISEASE
     Dosage: ORAL
     Route: 048
  2. ASACOL [Concomitant]
  3. STEROIDS (CORTICOSTEROIDS) [Concomitant]
  4. CHEMOTHERAPY (ANTINEOPLASTIC AGENTS) [Concomitant]
  5. ADRIAMYCIN (ADRIAMYCIN) [Concomitant]
  6. CYTOXAN [Concomitant]

REACTIONS (1)
  - BREAST CANCER [None]
